FAERS Safety Report 14267743 (Version 1)
Quarter: 2017Q4

REPORT INFORMATION
  Report Type: Spontaneous
  Country: US (occurrence: US)
  Receive Date: 20171211
  Receipt Date: 20171211
  Transmission Date: 20180321
  Serious: No
  Sender: FDA-Public Use
  Company Number: US-ROCHE-1847280

PATIENT
  Sex: Female

DRUGS (2)
  1. LUCENTIS [Suspect]
     Active Substance: RANIBIZUMAB
     Indication: MACULAR DEGENERATION
     Dosage: 0.5MG/0.05ML
     Route: 065
     Dates: start: 201609
  2. HYALGAN [Concomitant]
     Active Substance: HYALURONATE SODIUM
     Dosage: 20MG/2ML
     Route: 065

REACTIONS (2)
  - Injection site swelling [Unknown]
  - Injection site pruritus [Unknown]
